FAERS Safety Report 6606212 (Version 2)
Quarter: 2013Q1

REPORT INFORMATION
  Report Type: Spontaneous
  Country: US (occurrence: US)
  Receive Date: 20080404
  Receipt Date: 20130221
  Transmission Date: 20140127
  Serious: Yes (Hospitalization)
  Sender: FDA-Public Use
  Company Number: US-AMGEN-QUU271251

PATIENT
  Age: 65 Year
  Sex: Female

DRUGS (1)
  1. ENBREL [Suspect]
     Indication: RHEUMATOID ARTHRITIS
     Dosage: 25 MG, 2 TIMES/WK
     Route: 058
     Dates: start: 20021202

REACTIONS (17)
  - Joint arthroplasty [Recovered/Resolved]
  - Hip arthroplasty [Recovered/Resolved]
  - Drug eruption [Recovered/Resolved]
  - Postoperative wound infection [Recovered/Resolved]
  - Colitis [Recovered/Resolved]
  - Arthritis [Recovering/Resolving]
  - Cataract [Not Recovered/Not Resolved]
  - Joint swelling [Recovered/Resolved]
  - Fatigue [Recovered/Resolved]
  - Laceration [Recovered/Resolved]
  - Pyrexia [Recovered/Resolved]
  - Fall [Recovered/Resolved]
  - Influenza [Not Recovered/Not Resolved]
  - Upper respiratory tract infection [Not Recovered/Not Resolved]
  - Injection site pain [Not Recovered/Not Resolved]
  - Injection site erythema [Not Recovered/Not Resolved]
  - Injection site pruritus [Not Recovered/Not Resolved]
